FAERS Safety Report 24857156 (Version 1)
Quarter: 2025Q1

REPORT INFORMATION
  Report Type: Other
  Country: CA (occurrence: CA)
  Receive Date: 20250117
  Receipt Date: 20250117
  Transmission Date: 20250409
  Serious: Yes (Hospitalization, Other)
  Sender: PFIZER
  Company Number: CA-PFIZER INC-202500009849

PATIENT
  Age: 71 Year

DRUGS (7)
  1. VORICONAZOLE [Suspect]
     Active Substance: VORICONAZOLE
     Indication: Keratitis fungal
     Route: 048
  2. VORICONAZOLE [Suspect]
     Active Substance: VORICONAZOLE
     Indication: Keratitis fungal
     Route: 061
  3. PREDNISOLONE ACETATE [Suspect]
     Active Substance: PREDNISOLONE ACETATE
     Indication: Inflammation
     Route: 061
  4. ATROPINE [Concomitant]
     Active Substance: ATROPINE
     Route: 065
  5. HOMATROPINE [Concomitant]
     Active Substance: HOMATROPINE HYDROBROMIDE
     Route: 065
  6. MOXIFLOXACIN [Concomitant]
     Active Substance: MOXIFLOXACIN
     Route: 065
  7. OFLOXACIN [Concomitant]
     Active Substance: OFLOXACIN
     Route: 065

REACTIONS (2)
  - Hypertransaminasaemia [Recovering/Resolving]
  - Keratitis fungal [Recovering/Resolving]
